FAERS Safety Report 7937277-1 (Version None)
Quarter: 2011Q4

REPORT INFORMATION
  Report Type: 
  Country: None (occurrence: None)
  Receive Date: 20111123
  Receipt Date: 20111122
  Transmission Date: 20120403
  Serious: Yes (Other)
  Sender: FDA-Public Use
  Company Number: DE-BAYER-2011-112788

PATIENT

DRUGS (1)
  1. BETASERON [Suspect]
     Route: 064

REACTIONS (2)
  - FOETAL HEART RATE ABNORMAL [None]
  - CONGENITAL ANOMALY [None]
